FAERS Safety Report 6888472-4 (Version None)
Quarter: 2010Q3

REPORT INFORMATION
  Report Type: 
  Country: None (occurrence: None)
  Receive Date: 20100730
  Receipt Date: 20100719
  Transmission Date: 20110219
  Serious: Yes (Other)
  Sender: FDA-Public Use
  Company Number: PHHY2010JO47769

PATIENT
  Sex: Female
  Weight: 61 kg

DRUGS (2)
  1. ACLASTA [Suspect]
     Indication: OSTEOPOROSIS
     Dosage: 5MG/YEAR
     Route: 042
     Dates: start: 20090611
  2. ACLASTA [Suspect]
     Dosage: 5MG/YEAR
     Route: 042
     Dates: start: 20100704

REACTIONS (2)
  - CLAVICLE FRACTURE [None]
  - INJURY [None]
